FAERS Safety Report 5564960-8 (Version None)
Quarter: 2007Q4

REPORT INFORMATION
  Report Type: 
  Country: None (occurrence: None)
  Receive Date: 20071218
  Receipt Date: 20071214
  Transmission Date: 20080405
  Serious: Yes (Hospitalization)
  Sender: FDA-Public Use
  Company Number: B0499747A

PATIENT
  Age: 86 Year
  Sex: Female
  Weight: 36 kg

DRUGS (15)
  1. ARIXTRA [Suspect]
     Indication: THROMBOSIS PROPHYLAXIS
     Dosage: 2.5MG PER DAY
     Route: 058
     Dates: start: 20071204, end: 20071211
  2. BASEN [Concomitant]
     Dosage: .2MG THREE TIMES PER DAY
     Route: 048
  3. STARSIS [Concomitant]
     Dosage: 90MG THREE TIMES PER DAY
     Route: 048
  4. PREDONINE [Concomitant]
     Indication: POLYMYALGIA RHEUMATICA
     Dosage: 5MG PER DAY
     Route: 048
     Dates: start: 20050201
  5. ARTIST [Concomitant]
     Indication: HYPERTENSION
     Dosage: 10MG PER DAY
     Route: 048
  6. ALFAROL [Concomitant]
     Indication: OSTEOPOROSIS
     Dosage: .5MCG PER DAY
     Route: 048
  7. ZYRTEC [Concomitant]
     Dosage: 10MG PER DAY
     Route: 048
  8. LIPITOR [Concomitant]
     Dosage: 10MG PER DAY
     Route: 048
  9. NORVASC [Concomitant]
     Indication: HYPERTENSION
     Dosage: 2.5MG PER DAY
     Route: 048
  10. LENDORMIN [Concomitant]
     Indication: INSOMNIA
     Dosage: 125MCG PER DAY
     Route: 048
  11. GLYSENNID [Concomitant]
     Indication: CONSTIPATION
     Dosage: 24MG PER DAY
     Route: 048
  12. ZANTAC [Concomitant]
     Indication: CONSTIPATION
     Dosage: 75MG PER DAY
     Route: 048
  13. ACTONEL [Concomitant]
     Indication: OSTEOPOROSIS
     Dosage: 2.5MG PER DAY
     Route: 048
  14. INTRAVENOUS DRIP [Concomitant]
  15. OXYGEN [Concomitant]

REACTIONS (3)
  - ANAL HAEMORRHAGE [None]
  - BLOOD PRESSURE DECREASED [None]
  - MELAENA [None]
